FAERS Safety Report 22278392 (Version 2)
Quarter: 2023Q2

REPORT INFORMATION
  Report Type: Spontaneous
  Country: US (occurrence: US)
  Receive Date: 20230503
  Receipt Date: 20230517
  Transmission Date: 20230722
  Serious: Yes (Hospitalization)
  Sender: FDA-Public Use
  Company Number: US-MYLANLABS-2023M1046526

PATIENT
  Age: 54 Year
  Sex: Male
  Weight: 72.48 kg

DRUGS (5)
  1. BUPRENORPHINE [Suspect]
     Active Substance: BUPRENORPHINE
     Indication: Pain in extremity
     Dosage: 1 MILLIGRAM, BID, ON DAY 1
     Route: 065
     Dates: start: 20220809
  2. BUPRENORPHINE [Suspect]
     Active Substance: BUPRENORPHINE
     Indication: Wound complication
     Dosage: 2 MILLIGRAM, BID, FROM DAY 2
     Route: 065
     Dates: end: 20221209
  3. BUPRENORPHINE [Suspect]
     Active Substance: BUPRENORPHINE
     Indication: Impaired healing
     Dosage: 1 MILLIGRAM, BID, THERAPY CONTINUED AT REDUCED DOSE
     Route: 065
     Dates: start: 20221209
  4. MIRTAZAPINE [Concomitant]
     Active Substance: MIRTAZAPINE
     Indication: Product used for unknown indication
     Dosage: 15 UNK, QHS
     Route: 048
  5. PREGABALIN [Concomitant]
     Active Substance: PREGABALIN
     Indication: Product used for unknown indication
     Dosage: 25 MILLIGRAM, BID
     Route: 048

REACTIONS (3)
  - Confusional state [Recovered/Resolved]
  - Symptom recurrence [Recovered/Resolved]
  - Off label use [Unknown]
